FAERS Safety Report 8543145-7 (Version None)
Quarter: 2012Q3

REPORT INFORMATION
  Report Type: 
  Country: None (occurrence: None)
  Receive Date: 20120727
  Receipt Date: 20120508
  Transmission Date: 20120928
  Serious: No
  Sender: FDA-Public Use
  Company Number: US-MYLANLABS-2012S1009653

PATIENT
  Age: 45 Year
  Sex: Male
  Weight: 90.72 kg

DRUGS (4)
  1. LEVOTHYROXINE SODIUM [Suspect]
     Dates: start: 19900101
  2. LEVOTHYROXINE SODIUM [Suspect]
     Dates: start: 20120501
  3. VITAMIN TAB [Concomitant]
  4. LEVOTHYROXINE SODIUM [Suspect]
     Indication: HYPOTHYROIDISM
     Route: 048
     Dates: start: 20120428, end: 20120428

REACTIONS (2)
  - ADVERSE EVENT [None]
  - FEELING ABNORMAL [None]
